FAERS Safety Report 12754152 (Version 2)
Quarter: 2016Q4

REPORT INFORMATION
  Report Type: Spontaneous
  Country: US (occurrence: US)
  Receive Date: 20160916
  Receipt Date: 20161110
  Transmission Date: 20170207
  Serious: Yes (Other)
  Sender: FDA-Public Use
  Company Number: US-ASTRAZENECA-2016SE95661

PATIENT
  Sex: Male
  Weight: 63.5 kg

DRUGS (13)
  1. OMEPRAZOLE. [Suspect]
     Active Substance: OMEPRAZOLE
     Indication: ULCER
     Route: 048
     Dates: start: 2014
  2. GINKGO BILOBA [Concomitant]
     Active Substance: GINKGO
  3. ANORO ELLIPTA [Concomitant]
     Active Substance: UMECLIDINIUM BROMIDE\VILANTEROL TRIFENATATE
     Indication: CHRONIC OBSTRUCTIVE PULMONARY DISEASE
     Route: 055
     Dates: start: 20161004
  4. MELOXICAM. [Concomitant]
     Active Substance: MELOXICAM
     Indication: BONE DISORDER
     Dosage: 7.5 MG UNKNOWN
  5. SYMBICORT [Suspect]
     Active Substance: BUDESONIDE\FORMOTEROL FUMARATE DIHYDRATE
     Indication: CHRONIC OBSTRUCTIVE PULMONARY DISEASE
     Dosage: 160/4.5 MCG 2 PUFFS TWICE PER DAY
     Route: 055
  6. OMEPRAZOLE. [Suspect]
     Active Substance: OMEPRAZOLE
     Indication: ABDOMINAL PAIN UPPER
     Route: 048
     Dates: start: 2014
  7. AVORTASTATIN CALCIUM [Concomitant]
     Indication: BLOOD CALCIUM DECREASED
     Dosage: 20 MG 1 A DAY
     Dates: start: 2014
  8. MELOXICAM. [Concomitant]
     Active Substance: MELOXICAM
     Indication: FOOT DEFORMITY
     Route: 048
  9. LISINOPRIL. [Suspect]
     Active Substance: LISINOPRIL
     Indication: BLOOD PRESSURE ABNORMAL
     Route: 048
     Dates: start: 2011
  10. OMEPRAZOLE. [Suspect]
     Active Substance: OMEPRAZOLE
     Indication: ULCER
     Route: 048
     Dates: start: 2012
  11. OMEPRAZOLE. [Suspect]
     Active Substance: OMEPRAZOLE
     Indication: ABDOMINAL PAIN UPPER
     Route: 048
     Dates: start: 2012
  12. SYMBICORT [Suspect]
     Active Substance: BUDESONIDE\FORMOTEROL FUMARATE DIHYDRATE
     Indication: CHRONIC OBSTRUCTIVE PULMONARY DISEASE
     Dosage: 160/4.5 MCG 2 PUFFS TWICE PER DAY
     Route: 055
     Dates: start: 2016
  13. FLAVONE GLYCOSIDES [Concomitant]
     Dosage: 1 PILL A DAY FOR PAST COUPLE YEARS
     Dates: start: 2014

REACTIONS (9)
  - Memory impairment [Unknown]
  - Dyspnoea [Unknown]
  - Choking [Unknown]
  - Cough [Unknown]
  - Blood calcium decreased [Unknown]
  - Abdominal pain upper [Not Recovered/Not Resolved]
  - Respiratory failure [Unknown]
  - Ulcer [Unknown]
  - Intentional product misuse [Unknown]
